FAERS Safety Report 5615639-5 (Version None)
Quarter: 2008Q1

REPORT INFORMATION
  Report Type: 
  Country: None (occurrence: None)
  Receive Date: 20080206
  Receipt Date: 20080129
  Transmission Date: 20080703
  Serious: Yes (Other)
  Sender: FDA-Public Use
  Company Number: B0506274A

PATIENT
  Age: 66 Year
  Sex: Female

DRUGS (3)
  1. TYVERB [Suspect]
     Route: 065
  2. WARAN [Suspect]
     Indication: PULMONARY EMBOLISM
     Route: 048
     Dates: end: 20071003
  3. XELODA [Suspect]
     Route: 065

REACTIONS (5)
  - DRUG INTERACTION [None]
  - EPISTAXIS [None]
  - INTERNATIONAL NORMALISED RATIO INCREASED [None]
  - PROTHROMBIN LEVEL DECREASED [None]
  - WOUND HAEMORRHAGE [None]
